FAERS Safety Report 15708911 (Version 2)
Quarter: 2018Q4

REPORT INFORMATION
  Report Type: Report from Study
  Country: DO (occurrence: DO)
  Receive Date: 20181211
  Receipt Date: 20181225
  Transmission Date: 20190205
  Serious: Yes (Other)
  Sender: FDA-Public Use
  Company Number: PHHY2018DO109960

PATIENT
  Age: 53 Year
  Sex: Male
  Weight: 81.64 kg

DRUGS (7)
  1. VITAMIN B [Concomitant]
     Active Substance: VITAMIN B
     Indication: MULTIPLE SCLEROSIS
     Route: 065
  2. GILENYA [Suspect]
     Active Substance: FINGOLIMOD HYDROCHLORIDE
     Dosage: 0.5 MG, QD (BEFORE GOING TO SLEEP)
     Route: 065
  3. MAGNESIUM [Concomitant]
     Active Substance: MAGNESIUM
     Indication: MENTAL DISORDER
     Dosage: UNK
     Route: 065
  4. GILENYA [Suspect]
     Active Substance: FINGOLIMOD HYDROCHLORIDE
     Indication: MULTIPLE SCLEROSIS
     Dosage: 0.5 MG, UNK
     Route: 048
  5. GILENYA [Suspect]
     Active Substance: FINGOLIMOD HYDROCHLORIDE
     Dosage: 0.5 MG, QD (BEFORE BREAKFAST)
     Route: 065
  6. LANZEP [Concomitant]
     Indication: MENTAL DISORDER
     Dosage: 5 OT, BID
     Route: 065
  7. APROVEL [Concomitant]
     Active Substance: IRBESARTAN
     Indication: MENTAL DISORDER
     Dosage: 150 MG, QD

REACTIONS (7)
  - Heart rate decreased [Unknown]
  - Central nervous system lesion [Unknown]
  - Blindness unilateral [Unknown]
  - Fall [Recovering/Resolving]
  - Discomfort [Recovering/Resolving]
  - Blood pressure fluctuation [Unknown]
  - Malaise [Unknown]
